FAERS Safety Report 7251903-4 (Version None)
Quarter: 2011Q1

REPORT INFORMATION
  Report Type: 
  Country: None (occurrence: None)
  Receive Date: 20110128
  Receipt Date: 20110118
  Transmission Date: 20110831
  Serious: Yes (Other)
  Sender: FDA-Public Use
  Company Number: NL-AMGEN-NLDSP2011005162

PATIENT
  Age: 62 Year
  Sex: Female

DRUGS (13)
  1. LOSARTAN POTASSIUM [Concomitant]
     Dosage: UNK
  2. AMIODARONE [Concomitant]
     Dosage: UNK
  3. METFORMINE ^MERCK^ [Concomitant]
     Dosage: UNK
  4. TRIAMCINOLONE [Concomitant]
     Dosage: UNK
  5. METOPROLOL TARTRATE [Concomitant]
     Dosage: UNK
  6. LEVOCETIRIZINE DIHYDROCHLORIDE [Concomitant]
     Dosage: UNK
  7. ENBREL [Suspect]
     Indication: PSORIASIS
     Dosage: 50 MG, 2X/WEEK
     Dates: start: 20101105, end: 20101201
  8. FUROSEMIDE [Concomitant]
     Dosage: UNK
  9. ACENOCOUMAROL [Concomitant]
     Dosage: UNK
  10. LIPITOR [Concomitant]
     Dosage: UNK
  11. FEXOFENADINE HCL [Concomitant]
     Dosage: UNK
  12. ACTONEL [Concomitant]
     Dosage: UNK
  13. TRAMADOL HCL [Concomitant]
     Dosage: UNK

REACTIONS (3)
  - FALL [None]
  - RIB FRACTURE [None]
  - INFLUENZA [None]
